FAERS Safety Report 6112850-4 (Version None)
Quarter: 2009Q1

REPORT INFORMATION
  Report Type: 
  Country: None (occurrence: None)
  Receive Date: 20090312
  Receipt Date: 20090303
  Transmission Date: 20090719
  Serious: Yes (Hospitalization)
  Sender: FDA-Public Use
  Company Number: FR-ASTRAZENECA-2009CG00461

PATIENT
  Age: 61 Year
  Sex: Female
  Weight: 73 kg

DRUGS (8)
  1. ROPIVACAINE [Suspect]
     Indication: POSTOPERATIVE ANALGESIA
     Route: 053
  2. PROPOFOL [Concomitant]
     Indication: GENERAL ANAESTHESIA
     Route: 042
  3. SUFENTANIL [Concomitant]
     Indication: GENERAL ANAESTHESIA
     Route: 042
  4. KETAMINE HCL [Concomitant]
     Indication: GENERAL ANAESTHESIA
     Route: 042
  5. SEVOFLURANE [Concomitant]
     Indication: GENERAL ANAESTHESIA
     Route: 055
  6. PARACETAMOL [Concomitant]
     Indication: POSTOPERATIVE ANALGESIA
  7. TRAMADOL [Concomitant]
     Indication: POSTOPERATIVE ANALGESIA
  8. NON-STEROIDAL ANTIINFLAMMATORY DRUGS [Concomitant]
     Indication: POSTOPERATIVE ANALGESIA

REACTIONS (1)
  - RENAL FAILURE ACUTE [None]
